FAERS Safety Report 4922040-6 (Version None)
Quarter: 2006Q1

REPORT INFORMATION
  Report Type: 
  Country: None (occurrence: None)
  Receive Date: 20060224
  Receipt Date: 20060214
  Transmission Date: 20060701
  Serious: Yes (Hospitalization)
  Sender: FDA-Public Use
  Company Number: PHBS2006IT02609

PATIENT
  Age: 16 Year
  Sex: Female

DRUGS (1)
  1. CARBAMAZEPINE [Suspect]
     Indication: EPILEPSY
     Dosage: 400 MG/DAY
     Route: 065

REACTIONS (3)
  - ABNORMAL BEHAVIOUR [None]
  - MYOCLONUS [None]
  - STATUS EPILEPTICUS [None]
